FAERS Safety Report 9193887 (Version 2)
Quarter: 2013Q2

REPORT INFORMATION
  Report Type: Spontaneous
  Country: RO (occurrence: RO)
  Receive Date: 20130327
  Receipt Date: 20130403
  Transmission Date: 20140414
  Serious: Yes (Hospitalization, Other)
  Sender: FDA-Public Use
  Company Number: RO-PFIZER INC-2013095818

PATIENT
  Age: 45 Year
  Sex: Male

DRUGS (23)
  1. XANAX [Suspect]
     Indication: DEPRESSION
     Dosage: 75MG/ 3 DAYS
     Dates: start: 1997
  2. XANAX [Suspect]
     Indication: ANXIETY
  3. SERTRALINE HCL [Suspect]
     Indication: ANTIDEPRESSANT THERAPY
     Dosage: 75 MG, DAILY
  4. SERTRALINE HCL [Suspect]
     Dosage: 100 MG, UNK
  5. MIRTAZAPINE [Suspect]
     Indication: ANTIDEPRESSANT THERAPY
     Dosage: 30 MG, UNK
  6. RISPERIDONE [Suspect]
     Indication: PSYCHOTIC DISORDER
     Dosage: 6 MG, UNK
  7. SEROQUEL [Suspect]
     Indication: PSYCHOTIC DISORDER
     Dosage: 300 MG, DAILY
  8. SEROQUEL [Suspect]
     Dosage: 400 MG, DAILY
  9. SEROQUEL [Suspect]
     Dosage: 800 MG, DAILY
  10. RIVOTRIL [Suspect]
     Indication: ANXIOLYTIC THERAPY
     Dosage: 2.5 MG, DAILY
  11. RIVOTRIL [Suspect]
     Indication: SEDATIVE THERAPY
     Dosage: 3 MG, DAILY
  12. RIVOTRIL [Suspect]
     Dosage: 2 MG, DAILY
  13. ZYPREXA [Suspect]
     Indication: PSYCHOTIC DISORDER
     Dosage: 10 MG, UNK
  14. ORFIRIL [Suspect]
     Indication: AFFECTIVE DISORDER
     Dosage: 500 MG, DAILY
  15. DIAZEPAM [Suspect]
     Indication: ANXIOLYTIC THERAPY
     Dosage: 40 MG, DAILY
  16. DIAZEPAM [Suspect]
     Indication: SEDATIVE THERAPY
     Dosage: 50 MG, DAILY
  17. VALPROIC ACID [Suspect]
     Indication: AFFECTIVE DISORDER
     Dosage: 1000 MG, UNK
  18. LEXOTAN [Suspect]
     Indication: ANXIOLYTIC THERAPY
     Dosage: 4.5 MG, UNK
  19. LEVOMEPROMAZINE [Suspect]
     Indication: SEDATIVE THERAPY
     Dosage: 1/4 TABLET
  20. LEVOMEPROMAZINE [Suspect]
     Dosage: 1/2 TABLET
  21. DEPAKINE CHRONO [Suspect]
     Indication: AFFECTIVE DISORDER
     Dosage: 1000 MG, DAILY
  22. DEPAKINE CHRONO [Suspect]
     Dosage: 2000 MG, DAILY
  23. BROMAZEPAM [Suspect]
     Indication: ANXIOLYTIC THERAPY
     Dosage: 1.5 MG, AS NEEDED

REACTIONS (9)
  - Bipolar disorder [Unknown]
  - Mania [Unknown]
  - Depression [Unknown]
  - Anxiety [Unknown]
  - Drug dependence [Recovered/Resolved]
  - Intestinal obstruction [Recovered/Resolved]
  - Substance abuse [Recovered/Resolved]
  - Alcohol use [Recovered/Resolved]
  - Drug ineffective [Unknown]
